FAERS Safety Report 25069775 (Version 1)
Quarter: 2025Q1

REPORT INFORMATION
  Report Type: Report from Study
  Country: CO (occurrence: CO)
  Receive Date: 20250312
  Receipt Date: 20250312
  Transmission Date: 20250409
  Serious: Yes (Hospitalization)
  Sender: NOVARTIS
  Company Number: CO-002147023-NVSC2025CO009772

PATIENT
  Sex: Female
  Weight: 85 kg

DRUGS (6)
  1. COSENTYX [Suspect]
     Active Substance: SECUKINUMAB
     Indication: Hidradenitis
     Dosage: 300 MG, QW (ONCE A WEEK)
     Route: 058
     Dates: start: 20241009
  2. COSENTYX [Suspect]
     Active Substance: SECUKINUMAB
     Route: 058
  3. COSENTYX [Suspect]
     Active Substance: SECUKINUMAB
     Route: 058
     Dates: start: 20250129
  4. COSENTYX [Suspect]
     Active Substance: SECUKINUMAB
     Route: 058
     Dates: start: 20250212
  5. COSENTYX [Suspect]
     Active Substance: SECUKINUMAB
     Route: 058
     Dates: start: 20250228
  6. DOXYCYCLINE [Concomitant]
     Active Substance: DOXYCYCLINE
     Indication: Product used for unknown indication
     Route: 065
     Dates: start: 20250306

REACTIONS (20)
  - Leukocytosis [Recovering/Resolving]
  - Bronchitis [Not Recovered/Not Resolved]
  - White blood cell count increased [Not Recovered/Not Resolved]
  - Product intolerance [Unknown]
  - Influenza [Not Recovered/Not Resolved]
  - Decreased immune responsiveness [Unknown]
  - Acne [Not Recovered/Not Resolved]
  - Headache [Not Recovered/Not Resolved]
  - General physical health deterioration [Unknown]
  - Psoriasis [Not Recovered/Not Resolved]
  - Illness [Not Recovered/Not Resolved]
  - Hidradenitis [Not Recovered/Not Resolved]
  - Condition aggravated [Not Recovered/Not Resolved]
  - Malaise [Not Recovered/Not Resolved]
  - Breast discomfort [Not Recovered/Not Resolved]
  - Vulvovaginal discomfort [Not Recovered/Not Resolved]
  - Drug ineffective [Not Recovered/Not Resolved]
  - Pruritus [Recovering/Resolving]
  - Inflammation [Not Recovered/Not Resolved]
  - Axillary pain [Not Recovered/Not Resolved]
